FAERS Safety Report 7527642-9 (Version None)
Quarter: 2011Q2

REPORT INFORMATION
  Report Type: 
  Country: None (occurrence: None)
  Receive Date: 20110512
  Receipt Date: 20110316
  Transmission Date: 20111010
  Serious: No
  Sender: FDA-Public Use
  Company Number: 1000019290

PATIENT
  Age: 25 Year
  Sex: Male

DRUGS (3)
  1. MORPHINE [Concomitant]
  2. SAVELLA [Suspect]
     Indication: FIBROMYALGIA
     Dosage: SEE IMAGE
     Route: 048
     Dates: start: 20110307, end: 20110307
  3. SOMA (CARISOPRODOL) (CARISOPRODOL) [Concomitant]

REACTIONS (2)
  - FAECES DISCOLOURED [None]
  - TESTICULAR DISORDER [None]
